FAERS Safety Report 8172502-6 (Version None)
Quarter: 2012Q1

REPORT INFORMATION
  Report Type: 
  Country: None (occurrence: None)
  Receive Date: 20120227
  Receipt Date: 20120227
  Transmission Date: 20120608
  Serious: No
  Sender: FDA-Public Use
  Company Number: None

PATIENT
  Age: 62 Year
  Sex: Female
  Weight: 77.1 kg

DRUGS (12)
  1. KLONOPIN [Concomitant]
  2. ZOCOR [Concomitant]
  3. LISINOPRIL [Concomitant]
  4. CLONAZEPAM [Concomitant]
  5. PAXIL [Concomitant]
  6. HYROCHLOROTHYIAZIDE [Concomitant]
  7. METFORMIN HCL [Concomitant]
  8. ZIPRASIDONE HYDROCHLORIDE [Suspect]
     Indication: BIPOLAR DISORDER
     Dosage: PO  DAYS
     Route: 048
  9. ZIPRASIDONE HYDROCHLORIDE [Suspect]
     Indication: OVERDOSE
     Dosage: PO  DAYS
     Route: 048
  10. DEPAKOTE [Suspect]
     Indication: BIPOLAR DISORDER
     Dosage: PO   DAYS
     Route: 048
  11. DEPAKOTE [Suspect]
     Indication: OVERDOSE
     Dosage: PO   DAYS
     Route: 048
  12. GLYBURIDE [Concomitant]

REACTIONS (2)
  - MENTAL STATUS CHANGES [None]
  - LIVER FUNCTION TEST ABNORMAL [None]
